FAERS Safety Report 4791623-9 (Version None)
Quarter: 2005Q4

REPORT INFORMATION
  Report Type: 
  Country: None (occurrence: None)
  Receive Date: 20051007
  Receipt Date: 20050728
  Transmission Date: 20060501
  Serious: No
  Sender: FDA-Public Use
  Company Number: US-BRISTOL-MYERS SQUIBB COMPANY-13054291

PATIENT
  Age: 74 Year
  Sex: Male
  Weight: 84 kg

DRUGS (5)
  1. AVAPRO [Suspect]
     Indication: HYPERTENSION
     Dosage: TAKING RX ABOUT 2-3 YEARS; STARTED ON 150MH QD; THEN INCREASED TO 150 MG BID FOR ABOUT 18 MONTHS.
     Route: 048
  2. TOPROL-XL [Concomitant]
  3. ALLOPURINOL [Concomitant]
  4. VITAMIN B-12 [Concomitant]
  5. MULTIVITAMIN [Concomitant]

REACTIONS (6)
  - ABDOMINAL DISTENSION [None]
  - ABDOMINAL PAIN [None]
  - BURNING SENSATION [None]
  - STOMACH DISCOMFORT [None]
  - URETHRAL PAIN [None]
  - URINE ANALYSIS ABNORMAL [None]
